FAERS Safety Report 5507743-7 (Version None)
Quarter: 2007Q4

REPORT INFORMATION
  Report Type: 
  Country: None (occurrence: None)
  Receive Date: 20071102
  Receipt Date: 20071023
  Transmission Date: 20080405
  Serious: Yes (Other)
  Sender: FDA-Public Use
  Company Number: 2006P1000323

PATIENT
  Age: 64 Year
  Weight: 86 kg

DRUGS (5)
  1. RETEPLASE (RETEPLASE) [Suspect]
     Indication: ACUTE MYOCARDIAL INFARCTION
     Dosage: 5 IU;X1;IV; 5 IU;X1;IV
     Route: 042
     Dates: start: 20050119, end: 20050119
  2. RETEPLASE (RETEPLASE) [Suspect]
     Indication: ACUTE MYOCARDIAL INFARCTION
     Dosage: 5 IU;X1;IV; 5 IU;X1;IV
     Route: 042
     Dates: start: 20050119, end: 20050119
  3. ABCIXIMAB (ABCIXIMAB) [Suspect]
     Indication: ACUTE MYOCARDIAL INFARCTION
     Dosage: 10 ML;X1;IV; 250 ML; ;IV
     Route: 042
     Dates: start: 20050119, end: 20050119
  4. ABCIXIMAB (ABCIXIMAB) [Suspect]
     Indication: ACUTE MYOCARDIAL INFARCTION
     Dosage: 10 ML;X1;IV; 250 ML; ;IV
     Route: 042
     Dates: start: 20050119, end: 20050119
  5. HEPARIN [Concomitant]

REACTIONS (1)
  - MYOCARDIAL ISCHAEMIA [None]
